FAERS Safety Report 9255224 (Version 2)
Quarter: 2013Q4

REPORT INFORMATION
  Report Type: Spontaneous
  Country: GB (occurrence: GB)
  Receive Date: 20130425
  Receipt Date: 20131015
  Transmission Date: 20140711
  Serious: Yes (Hospitalization, Other)
  Sender: FDA-Public Use
  Company Number: GB-ACTAVIS-2013-07287

PATIENT
  Age: 60 Year
  Sex: Male

DRUGS (3)
  1. GLIBENCLAMIDE (UNKNOWN) [Suspect]
     Indication: PRODUCT USED FOR UNKNOWN INDICATION
     Dosage: DOSAGE FORM: UNKNOWN, DAILY DPSE TEXT :: 100 MILLIGRAMS DAILY DOSE QTY: 100 MG
     Route: 048
  2. METFORMIN (UNKNOWN) [Suspect]
     Dosage: DOSAGE FORM : UNKNOWN; DAILY DOSE TEXT: 50000 MILLIGRAM DAILY DOSE QTY: 50000 MG
     Route: 048
  3. MOTRIN [Suspect]
     Indication: PRODUCT USED FOR UNKNOWN INDICATION
     Dosage: DAILY DOSE TEXT: 8000 MILLIGRAM DAILY DOSE QTY: 8000 MG
     Route: 048

REACTIONS (10)
  - Lactic acidosis [Recovered/Resolved]
  - Ventricular fibrillation [Recovered/Resolved]
  - Overdose [Recovered/Resolved]
  - Vomiting [Recovered/Resolved]
  - Abdominal pain [Recovered/Resolved]
  - Tachypnoea [Recovered/Resolved]
  - Anuria [Recovered/Resolved]
  - Agitation [Recovered/Resolved]
  - Sedation [Recovered/Resolved]
  - Apnoea [Recovered/Resolved]
